FAERS Safety Report 16698532 (Version 1)
Quarter: 2019Q3

REPORT INFORMATION
  Report Type: Spontaneous
  Country: HU (occurrence: HU)
  Receive Date: 20190813
  Receipt Date: 20190813
  Transmission Date: 20191004
  Serious: Yes (Life-Threatening, Hospitalization, Other)
  Sender: FDA-Public Use
  Company Number: HU-PFIZER INC-2019342397

PATIENT
  Age: 44 Year
  Sex: Male

DRUGS (22)
  1. VINCRISTINE SULFATE. [Suspect]
     Active Substance: VINCRISTINE SULFATE
     Indication: DIFFUSE LARGE B-CELL LYMPHOMA
     Dosage: UNK, CYCLIC (SIX CYCLES)
     Dates: start: 2018
  2. CISPLATIN. [Suspect]
     Active Substance: CISPLATIN
     Indication: DIFFUSE LARGE B-CELL LYMPHOMA
     Dosage: UNK
  3. NEO FERRO FOLGAMMA [Concomitant]
     Dosage: 2 DF, 1X/DAY
     Route: 065
     Dates: start: 20190515
  4. RITUXIMAB. [Suspect]
     Active Substance: RITUXIMAB
     Indication: DIFFUSE LARGE B-CELL LYMPHOMA
     Dosage: UNK, CYCLIC (SIX CYCLES)
     Dates: start: 2018
  5. RETACRIT [EPOETIN ZETA] [Concomitant]
     Dosage: 1 DF, WEEKLY
     Route: 058
     Dates: start: 20190515
  6. DEXAMETHASONE. [Suspect]
     Active Substance: DEXAMETHASONE
     Indication: DIFFUSE LARGE B-CELL LYMPHOMA
     Dosage: UNK
  7. PREDNISONE. [Suspect]
     Active Substance: PREDNISONE
     Indication: DIFFUSE LARGE B-CELL LYMPHOMA
     Dosage: UNK, CYCLIC
     Dates: start: 2018
  8. BRENTUXIMAB [Suspect]
     Active Substance: BRENTUXIMAB VEDOTIN
     Indication: DIFFUSE LARGE B-CELL LYMPHOMA
     Dosage: UNK
  9. IFOSFAMIDE. [Suspect]
     Active Substance: IFOSFAMIDE
     Indication: AUTOLOGOUS HAEMATOPOIETIC STEM CELL TRANSPLANT
  10. SUMETROLIM [Concomitant]
     Active Substance: SULFAMETHOXAZOLE\TRIMETHOPRIM
     Dosage: 2 DF, 1X/DAY
  11. CYTARABINE. [Suspect]
     Active Substance: CYTARABINE
     Indication: DIFFUSE LARGE B-CELL LYMPHOMA
     Dosage: UNK
  12. CARBOPLATIN. [Suspect]
     Active Substance: CARBOPLATIN
     Indication: DIFFUSE LARGE B-CELL LYMPHOMA
     Dosage: UNK
     Dates: end: 20190603
  13. ADCETRIS [Suspect]
     Active Substance: BRENTUXIMAB VEDOTIN
     Indication: DIFFUSE LARGE B-CELL LYMPHOMA
     Dosage: UNK
     Dates: end: 20190603
  14. GEMCITABINE. [Suspect]
     Active Substance: GEMCITABINE
     Indication: AUTOLOGOUS HAEMATOPOIETIC STEM CELL TRANSPLANT
     Dosage: UNK
  15. DOXORUBICIN HYDROCHLORIDE. [Suspect]
     Active Substance: DOXORUBICIN HYDROCHLORIDE
     Indication: DIFFUSE LARGE B-CELL LYMPHOMA
     Dosage: UNK, CYCLIC (SIX CYCLES)
     Dates: start: 2018
  16. ETOPOSIDE. [Suspect]
     Active Substance: ETOPOSIDE
     Indication: DIFFUSE LARGE B-CELL LYMPHOMA
     Dosage: UNK
     Dates: end: 20190603
  17. HERPESIN [ACICLOVIR] [Concomitant]
     Dosage: 1 DF, 1X/DAY
  18. CYCLOPHOSPHAMIDE. [Suspect]
     Active Substance: CYCLOPHOSPHAMIDE
     Indication: DIFFUSE LARGE B-CELL LYMPHOMA
     Dosage: UNK, CYCLIC (SIX CYCLES)
     Dates: start: 2018
  19. MILURIT [Concomitant]
     Active Substance: ALLOPURINOL
     Dosage: 1 DF, UNK
  20. VINORELBINE [Suspect]
     Active Substance: VINORELBINE TARTRATE
     Indication: AUTOLOGOUS HAEMATOPOIETIC STEM CELL TRANSPLANT
     Dosage: UNK
  21. IFOSFAMIDE. [Suspect]
     Active Substance: IFOSFAMIDE
     Indication: DIFFUSE LARGE B-CELL LYMPHOMA
     Dosage: UNK
     Dates: end: 20190603
  22. ACCOFIL [Concomitant]
     Active Substance: FILGRASTIM
     Dosage: 1 DF, 1X/DAY
     Route: 058
     Dates: start: 20190601

REACTIONS (22)
  - Pericardial effusion [Unknown]
  - Diverticulum intestinal [Unknown]
  - Acquired diaphragmatic eventration [Unknown]
  - Pancytopenia [Unknown]
  - Atelectasis [Unknown]
  - Breast pain [Unknown]
  - Lipase increased [Unknown]
  - White blood cell disorder [Unknown]
  - Thrombocytopenia [Unknown]
  - Nausea [Unknown]
  - Cough [Recovering/Resolving]
  - Dyspnoea exertional [Unknown]
  - Anaemia [Unknown]
  - Gynaecomastia [Unknown]
  - Asthenia [Unknown]
  - Amylase increased [Unknown]
  - Neoplasm progression [Unknown]
  - Immunodeficiency [Unknown]
  - Agranulocytosis [Unknown]
  - Febrile neutropenia [Not Recovered/Not Resolved]
  - Prostatomegaly [Unknown]
  - Pleural effusion [Unknown]

NARRATIVE: CASE EVENT DATE: 201901
